FAERS Safety Report 23275576 (Version 2)
Quarter: 2023Q4

REPORT INFORMATION
  Report Type: Spontaneous
  Country: CN (occurrence: CN)
  Receive Date: 20231208
  Receipt Date: 20231219
  Transmission Date: 20240110
  Serious: Yes (Hospitalization, Other)
  Sender: FDA-Public Use
  Company Number: CN-JUBILANT CADISTA PHARMACEUTICALS-2023CN001552

PATIENT
  Age: 19 Year
  Sex: Female

DRUGS (8)
  1. RISPERIDONE [Interacting]
     Active Substance: RISPERIDONE
     Indication: Schizophrenia
     Dosage: 2 MG PER DAY
  2. RISPERIDONE [Interacting]
     Active Substance: RISPERIDONE
     Dosage: 6 MG PER DAY
  3. RISPERIDONE [Interacting]
     Active Substance: RISPERIDONE
     Dosage: 6 MG PER DAY
  4. RISPERIDONE [Interacting]
     Active Substance: RISPERIDONE
     Dosage: 4 MG PER DAY
  5. ARIPIPRAZOLE [Interacting]
     Active Substance: ARIPIPRAZOLE
     Indication: Schizophrenia
     Dosage: 30 MG, ONCE PER DAY
  6. ARIPIPRAZOLE [Interacting]
     Active Substance: ARIPIPRAZOLE
     Dosage: 20 MG,ONCE PER DAY
     Dates: start: 2022
  7. TRIHEXYPHENIDYL HYDROCHLORIDE [Concomitant]
     Active Substance: TRIHEXYPHENIDYL HYDROCHLORIDE
     Indication: Product used for unknown indication
     Dosage: 4  MG PER DAY
  8. TRIHEXYPHENIDYL HYDROCHLORIDE [Concomitant]
     Active Substance: TRIHEXYPHENIDYL HYDROCHLORIDE
     Dosage: 4  MG/D

REACTIONS (5)
  - Oculogyric crisis [Recovered/Resolved]
  - Eye movement disorder [Recovering/Resolving]
  - Staring [Recovering/Resolving]
  - Irritability [Recovering/Resolving]
  - Drug interaction [Recovering/Resolving]

NARRATIVE: CASE EVENT DATE: 20220101
